FAERS Safety Report 4502495-1 (Version None)
Quarter: 2004Q3

REPORT INFORMATION
  Report Type: 
  Country: None (occurrence: None)
  Receive Date: 20040928
  Receipt Date: 20040629
  Transmission Date: 20050211
  Serious: No
  Sender: FDA-Public Use
  Company Number: 04P-163-0265109-00

PATIENT
  Age: 62 Year
  Sex: Female
  Weight: 6.804 kg

DRUGS (5)
  1. HUMIRA [Suspect]
     Indication: RHEUMATOID ARTHRITIS
     Dosage: 40 MG, 1 IN 2 WK, SUBCUTANEOUS
     Route: 058
     Dates: start: 20040518
  2. METHOTREXATE [Concomitant]
  3. CELECOXIB [Concomitant]
  4. ATENOLOL [Concomitant]
  5. PROPACET 100 [Concomitant]

REACTIONS (2)
  - INJECTION SITE BURNING [None]
  - INJECTION SITE HAEMORRHAGE [None]
